FAERS Safety Report 8922951 (Version 1)
Quarter: 2012Q4

REPORT INFORMATION
  Report Type: Report from Study
  Country: JP (occurrence: JP)
  Receive Date: 20121123
  Receipt Date: 20121123
  Transmission Date: 20130627
  Serious: Yes (Other)
  Sender: FDA-Public Use
  Company Number: JP-009507513-1211JPN008448

PATIENT
  Age: 63 Year
  Sex: Female
  Weight: 49 kg

DRUGS (11)
  1. PEGINTRON [Suspect]
     Indication: CHRONIC HEPATITIS C
     Dosage: 1.5 Microgram per kilogram, qw
     Route: 058
     Dates: start: 20120807, end: 20120920
  2. PEGINTRON [Suspect]
     Dosage: 1.5 Microgram per kilogram, qw
     Route: 058
     Dates: start: 20121011
  3. REBETOL [Suspect]
     Indication: CHRONIC HEPATITIS C
     Dosage: 600 mg, qd
     Route: 048
     Dates: start: 20120807, end: 20120819
  4. REBETOL [Suspect]
     Dosage: 400 mg, qd
     Route: 048
     Dates: start: 20120820, end: 20120926
  5. REBETOL [Suspect]
     Dosage: 400 mg, qd
     Route: 048
     Dates: start: 20121018, end: 20121024
  6. REBETOL [Suspect]
     Dosage: 600 mg, qd
     Route: 048
     Dates: start: 20121025
  7. TELAVIC [Suspect]
     Indication: CHRONIC HEPATITIS C
     Dosage: 2250 mg, qd
     Route: 048
     Dates: start: 20120807, end: 20120926
  8. ZYLORIC [Concomitant]
     Indication: PROPHYLAXIS
     Dosage: 300 mg, qd
     Route: 048
     Dates: start: 20120807, end: 20120926
  9. LACTEC [Concomitant]
     Indication: PROPHYLAXIS
     Dosage: 1000 ml, qd
     Route: 042
     Dates: start: 20120807, end: 20120829
  10. MUCOSTA [Concomitant]
     Indication: PROPHYLAXIS
     Dosage: 100 mg/day as needed
     Route: 048
     Dates: start: 20120807
  11. LOXONIN [Concomitant]
     Indication: PROPHYLAXIS
     Dosage: 60 mg/day, as needed
     Route: 048
     Dates: start: 20120807

REACTIONS (2)
  - Rash [Recovering/Resolving]
  - Haemoglobin decreased [Not Recovered/Not Resolved]
